FAERS Safety Report 5281711-5 (Version None)
Quarter: 2007Q1

REPORT INFORMATION
  Report Type: 
  Country: None (occurrence: None)
  Receive Date: 20070330
  Receipt Date: 20070326
  Transmission Date: 20070707
  Serious: Yes (Death)
  Sender: FDA-Public Use
  Company Number: 05-CV-6115CM

PATIENT
  Age: 13 Year
  Sex: Male

DRUGS (2)
  1. WELLBUTRIN [Suspect]
     Route: 048
     Dates: start: 20030101, end: 20030101
  2. CELEXA [Suspect]
     Indication: DRUG USE FOR UNKNOWN INDICATION
     Route: 065
     Dates: start: 20030101, end: 20031231

REACTIONS (1)
  - COMPLETED SUICIDE [None]
